FAERS Safety Report 6679541-2 (Version None)
Quarter: 2010Q2

REPORT INFORMATION
  Report Type: 
  Country: None (occurrence: None)
  Receive Date: 20100413
  Receipt Date: 20100401
  Transmission Date: 20101027
  Serious: Yes (Other)
  Sender: FDA-Public Use
  Company Number: PHHY2010IE22342

PATIENT
  Sex: Male

DRUGS (1)
  1. CLOZARIL [Suspect]
     Indication: SCHIZOPHRENIA
     Dosage: 137.5 MG, UNK
     Dates: start: 20100322

REACTIONS (8)
  - BODY TEMPERATURE FLUCTUATION [None]
  - CHEST PAIN [None]
  - DYSPNOEA [None]
  - HIATUS HERNIA [None]
  - NEUTROPHIL COUNT INCREASED [None]
  - PLEURITIC PAIN [None]
  - VOMITING [None]
  - WHITE BLOOD CELL COUNT INCREASED [None]
